FAERS Safety Report 20394081 (Version 3)
Quarter: 2023Q2

REPORT INFORMATION
  Report Type: Spontaneous
  Country: US (occurrence: US)
  Receive Date: 20220129
  Receipt Date: 20230515
  Transmission Date: 20230721
  Serious: Yes (Other)
  Sender: FDA-Public Use
  Company Number: US-NOVARTISTESTPH-NVSC2021US184886

PATIENT
  Age: 3 Month
  Sex: Male
  Weight: 3.6 kg

DRUGS (9)
  1. INFUVITE PEDIATRIC [Suspect]
     Active Substance: .ALPHA.-TOCOPHEROL ACETATE\ASCORBIC ACID\BIOTIN\CHOLECALCIFEROL\CYANOCOBALAMIN\DEXPANTHENOL\FOLIC AC
     Indication: Parenteral nutrition
     Dosage: UNK UNK, QD
     Route: 065
     Dates: start: 20210607
  2. INFUVITE PEDIATRIC [Suspect]
     Active Substance: .ALPHA.-TOCOPHEROL ACETATE\ASCORBIC ACID\BIOTIN\CHOLECALCIFEROL\CYANOCOBALAMIN\DEXPANTHENOL\FOLIC AC
     Dosage: UNK
     Route: 065
     Dates: start: 20210618
  3. INFUVITE PEDIATRIC [Suspect]
     Active Substance: .ALPHA.-TOCOPHEROL ACETATE\ASCORBIC ACID\BIOTIN\CHOLECALCIFEROL\CYANOCOBALAMIN\DEXPANTHENOL\FOLIC AC
     Dosage: UNK
     Route: 065
     Dates: start: 20210621
  4. INFUVITE PEDIATRIC [Suspect]
     Active Substance: .ALPHA.-TOCOPHEROL ACETATE\ASCORBIC ACID\BIOTIN\CHOLECALCIFEROL\CYANOCOBALAMIN\DEXPANTHENOL\FOLIC AC
     Dosage: UNK
     Route: 065
     Dates: start: 20210623, end: 20210623
  5. INFUVITE PEDIATRIC [Suspect]
     Active Substance: .ALPHA.-TOCOPHEROL ACETATE\ASCORBIC ACID\BIOTIN\CHOLECALCIFEROL\CYANOCOBALAMIN\DEXPANTHENOL\FOLIC AC
     Dosage: 5 ML (DOSED AT 2.5 ML/KG UP TO A MAX OF 5 ML, BATCH NO: LF7653, LF8976 + LF8977
     Route: 042
     Dates: start: 20210607, end: 20210623
  6. TPN [Concomitant]
     Active Substance: AMINO ACIDS\DEXTROSE\ELECTROLYTES NOS\SOYBEAN OIL
     Indication: Nutritional supplementation
     Dosage: UNK
     Route: 042
     Dates: start: 20210604
  7. VITAMINS [Concomitant]
     Active Substance: VITAMINS
     Indication: Product used for unknown indication
     Dosage: UNK
     Route: 065
  8. PANTOPRAZOLE [Concomitant]
     Active Substance: PANTOPRAZOLE
     Indication: Product used for unknown indication
     Dosage: 3.3 MG, Q12H
     Route: 042
     Dates: start: 20210615, end: 20210809
  9. SMOFLIPID [Concomitant]
     Active Substance: FISH OIL\MEDIUM-CHAIN TRIGLYCERIDES\OLIVE OIL\SOYBEAN OIL
     Indication: Nutritional supplementation
     Dosage: 3 GRAM PER KILOGRAM, QD
     Route: 042
     Dates: start: 20210604

REACTIONS (4)
  - Rash [Recovered/Resolved]
  - Flushing [Recovered/Resolved]
  - Tachycardia [Recovered/Resolved]
  - Infusion site irritation [Recovered/Resolved]

NARRATIVE: CASE EVENT DATE: 20210618
